FAERS Safety Report 5451411-7 (Version None)
Quarter: 2007Q3

REPORT INFORMATION
  Report Type: 
  Country: None (occurrence: None)
  Receive Date: 20070911
  Receipt Date: 20070911
  Transmission Date: 20080115
  Serious: Yes (Other)
  Sender: FDA-Public Use
  Company Number: None

PATIENT
  Age: 33 Year
  Sex: Female
  Weight: 48.9885 kg

DRUGS (2)
  1. EFFEXOR XR [Suspect]
     Indication: DEPRESSION
     Dosage: 75 MG ONCE A DAY PO
     Route: 048
     Dates: start: 20060501, end: 20070910
  2. EFFEXOR XR [Suspect]
     Dosage: 37 ONCE A DAY PO
     Route: 048

REACTIONS (3)
  - ANGER [None]
  - DRUG WITHDRAWAL SYNDROME [None]
  - ILL-DEFINED DISORDER [None]
